FAERS Safety Report 24632449 (Version 3)
Quarter: 2025Q1

REPORT INFORMATION
  Report Type: Spontaneous
  Country: JP (occurrence: JP)
  Receive Date: 20241118
  Receipt Date: 20250109
  Transmission Date: 20250409
  Serious: Yes (Death)
  Sender: NOVARTIS
  Company Number: JP-002147023-NVSC2024JP221463

PATIENT
  Age: 74 Year
  Sex: Female

DRUGS (10)
  1. AFINITOR [Suspect]
     Active Substance: EVEROLIMUS
     Indication: Pancreatic neuroendocrine tumour
     Route: 048
  2. AFINITOR [Suspect]
     Active Substance: EVEROLIMUS
     Indication: Metastases to liver
  3. EPIRUBICIN [Suspect]
     Active Substance: EPIRUBICIN
     Indication: Pancreatic neuroendocrine tumour
     Route: 065
  4. EPIRUBICIN [Suspect]
     Active Substance: EPIRUBICIN
     Indication: Metastases to liver
  5. LIPIODOL [Suspect]
     Active Substance: ETHIODIZED OIL
     Indication: Pancreatic neuroendocrine tumour
     Route: 065
  6. LIPIODOL [Suspect]
     Active Substance: ETHIODIZED OIL
     Indication: Metastases to liver
  7. GELATIN [Suspect]
     Active Substance: GELATIN
     Indication: Pancreatic neuroendocrine tumour
     Route: 065
  8. GELATIN [Suspect]
     Active Substance: GELATIN
     Indication: Metastases to liver
  9. SOMATOSTATIN [Suspect]
     Active Substance: SOMATOSTATIN
     Indication: Pancreatic neuroendocrine tumour
     Route: 065
  10. SOMATOSTATIN [Suspect]
     Active Substance: SOMATOSTATIN
     Indication: Metastases to liver

REACTIONS (2)
  - Pancreatic neuroendocrine tumour [Fatal]
  - Malignant neoplasm progression [Fatal]
